FAERS Safety Report 12707121 (Version 1)
Quarter: 2016Q3

REPORT INFORMATION
  Report Type: Spontaneous
  Country: JP (occurrence: JP)
  Receive Date: 20160901
  Receipt Date: 20160901
  Transmission Date: 20161109
  Serious: Yes (Other)
  Sender: FDA-Public Use
  Company Number: JP-BAYER-2016-169270

PATIENT
  Sex: Male

DRUGS (1)
  1. BAYASPIRIN [Suspect]
     Active Substance: ASPIRIN
     Route: 048

REACTIONS (4)
  - Plague [None]
  - Arteriosclerosis [None]
  - Myalgia [Recovered/Resolved]
  - Visual impairment [None]
